FAERS Safety Report 8032405-4 (Version None)
Quarter: 2012Q1

REPORT INFORMATION
  Report Type: 
  Country: None (occurrence: None)
  Receive Date: 20120109
  Receipt Date: 20120109
  Transmission Date: 20120608
  Serious: No
  Sender: FDA-Public Use
  Company Number: None

PATIENT
  Sex: Male

DRUGS (1)
  1. CARBOPLATIN [Suspect]
     Indication: NON-SMALL CELL LUNG CANCER
     Dosage: 625 MG IV
     Route: 042
     Dates: start: 20111229

REACTIONS (3)
  - COUGH [None]
  - CHEST DISCOMFORT [None]
  - ERYTHEMA [None]
